FAERS Safety Report 15504532 (Version 1)
Quarter: 2018Q4

REPORT INFORMATION
  Report Type: Spontaneous
  Country: US (occurrence: US)
  Receive Date: 20181016
  Receipt Date: 20181016
  Transmission Date: 20190205
  Serious: No
  Sender: FDA-Public Use
  Company Number: US-SA-2018SA277405

PATIENT
  Sex: Female

DRUGS (3)
  1. AUBAGIO [Suspect]
     Active Substance: TERIFLUNOMIDE
     Indication: MULTIPLE SCLEROSIS
     Dosage: 1 DF, QD
     Route: 048
     Dates: start: 201211
  2. AMPYRA [Concomitant]
     Active Substance: DALFAMPRIDINE
     Dosage: UNK
     Dates: start: 201802
  3. BACLOFEN. [Concomitant]
     Active Substance: BACLOFEN
     Dosage: UNK
     Dates: start: 20180820

REACTIONS (3)
  - Chest discomfort [Unknown]
  - Wheezing [Unknown]
  - Dyspnoea [Unknown]

NARRATIVE: CASE EVENT DATE: 201809
